FAERS Safety Report 22643839 (Version 1)
Quarter: 2023Q2

REPORT INFORMATION
  Report Type: Spontaneous
  Country: NL (occurrence: NL)
  Receive Date: 20230627
  Receipt Date: 20230627
  Transmission Date: 20230722
  Serious: Yes (Hospitalization)
  Sender: FDA-Public Use
  Company Number: NL-STRIDES ARCOLAB LIMITED-2023SP009997

PATIENT

DRUGS (1)
  1. OXYBUTYNIN [Suspect]
     Active Substance: OXYBUTYNIN
     Indication: Hypertonic bladder
     Dosage: UNK
     Route: 065

REACTIONS (2)
  - Seizure [Unknown]
  - Psychotic disorder [Unknown]
